FAERS Safety Report 15208828 (Version 1)
Quarter: 2018Q3

REPORT INFORMATION
  Report Type: Spontaneous
  Country: US (occurrence: US)
  Receive Date: 20180629
  Receipt Date: 20180629
  Transmission Date: 20181010
  Serious: No
  Sender: FDA-Public Use
  Company Number: None

PATIENT
  Age: 7 Day
  Sex: Male
  Weight: .8 kg

DRUGS (10)
  1. CAFFEINE. [Concomitant]
     Active Substance: CAFFEINE
     Dates: start: 20180504, end: 20180510
  2. DOPAMINE [Concomitant]
     Active Substance: DOPAMINE\DOPAMINE HYDROCHLORIDE
     Dates: start: 20180509, end: 20180510
  3. HYDROCORTISONE. [Suspect]
     Active Substance: HYDROCORTISONE
     Indication: PREMATURE BABY
     Route: 040
     Dates: start: 20180508, end: 20180511
  4. GENTAMICIN. [Concomitant]
     Active Substance: GENTAMICIN
     Dates: start: 20180509, end: 20180509
  5. MORPHINE DRIP [Concomitant]
     Dates: start: 20180507, end: 20180511
  6. VECURONIUM DRIP [Concomitant]
     Dates: start: 20180509, end: 20180510
  7. VITAMIN A [Concomitant]
     Active Substance: VITAMIN A
     Dates: start: 20180504, end: 20180511
  8. HYDROCORTISONE. [Suspect]
     Active Substance: HYDROCORTISONE
     Indication: CRITICAL ILLNESS
     Route: 040
     Dates: start: 20180508, end: 20180511
  9. AMPICILLIN [Concomitant]
     Active Substance: AMPICILLIN
     Dates: start: 20180504, end: 20180510
  10. LORAZEPAM. [Concomitant]
     Active Substance: LORAZEPAM
     Dates: start: 20180505, end: 20180510

REACTIONS (1)
  - Hypertension [None]

NARRATIVE: CASE EVENT DATE: 20180510
